FAERS Safety Report 5449884-9 (Version None)
Quarter: 2007Q3

REPORT INFORMATION
  Report Type: 
  Country: None (occurrence: None)
  Receive Date: 20070910
  Receipt Date: 20070910
  Transmission Date: 20080115
  Serious: Yes (Hospitalization)
  Sender: FDA-Public Use
  Company Number: None

PATIENT
  Sex: Female
  Weight: 67.6 kg

DRUGS (2)
  1. CYCLOPHOSPHAMIDE [Suspect]
     Dosage: 4104 MG
  2. DOXORUBICIN HYDROCHLORIDE [Suspect]
     Dosage: 412 MG

REACTIONS (8)
  - DEHYDRATION [None]
  - DIZZINESS [None]
  - FACE INJURY [None]
  - FACIAL BONES FRACTURE [None]
  - FALL [None]
  - LOSS OF CONSCIOUSNESS [None]
  - NEUTROPHIL COUNT DECREASED [None]
  - ORTHOSTATIC HYPERTENSION [None]
